FAERS Safety Report 20083815 (Version 1)
Quarter: 2021Q4

REPORT INFORMATION
  Report Type: Spontaneous
  Country: US (occurrence: None)
  Receive Date: 20211118
  Receipt Date: 20211118
  Transmission Date: 20220303
  Serious: No
  Sender: FDA-Public Use
  Company Number: 2021A788573

PATIENT
  Sex: Male

DRUGS (1)
  1. SYMBICORT [Suspect]
     Active Substance: BUDESONIDE\FORMOTEROL FUMARATE DIHYDRATE
     Indication: Chronic obstructive pulmonary disease
     Dosage: UNKNOWN FREQUENCY UNKNOWN
     Route: 055

REACTIONS (4)
  - Visual impairment [Unknown]
  - Cataract [Unknown]
  - Retinal disorder [Unknown]
  - Eye disorder [Unknown]
